FAERS Safety Report 10039549 (Version 1)
Quarter: 2014Q1

REPORT INFORMATION
  Report Type: Spontaneous
  Country: DE (occurrence: DE)
  Receive Date: 20140326
  Receipt Date: 20140326
  Transmission Date: 20141002
  Serious: Yes (Other)
  Sender: FDA-Public Use
  Company Number: GXKR2014DE001311

PATIENT
  Age: 73 Year
  Sex: Male

DRUGS (1)
  1. DICLOFENAC [Suspect]
     Indication: MUSCULOSKELETAL STIFFNESS
     Dosage: 2 DF, ONCE/SINGLE
     Route: 048

REACTIONS (5)
  - Cerebrovascular accident [Unknown]
  - Visual field defect [Unknown]
  - Nausea [Unknown]
  - Vomiting [Unknown]
  - Dizziness [Unknown]
